FAERS Safety Report 11778996 (Version 2)
Quarter: 2016Q2

REPORT INFORMATION
  Report Type: Report from Study
  Country: PL (occurrence: PL)
  Receive Date: 20151125
  Receipt Date: 20160427
  Transmission Date: 20160815
  Serious: Yes (Other)
  Sender: FDA-Public Use
  Company Number: PHHY2015PL083643

PATIENT
  Age: 14 Year
  Sex: Male

DRUGS (2)
  1. EXJADE [Suspect]
     Active Substance: DEFERASIROX
     Indication: PRODUCT USED FOR UNKNOWN INDICATION
     Dosage: 18 MG/KG, UNK
     Route: 065
  2. EXJADE [Suspect]
     Active Substance: DEFERASIROX
     Dosage: 12 MG, UNK
     Route: 065

REACTIONS (17)
  - Cystitis haemorrhagic [Unknown]
  - Nausea [Unknown]
  - Diarrhoea [Unknown]
  - Gastrointestinal disorder [Unknown]
  - Cytomegalovirus infection [Unknown]
  - Stomatitis [Unknown]
  - Cataract [Unknown]
  - Vomiting [Unknown]
  - Ulcer [Unknown]
  - Febrile neutropenia [Unknown]
  - Haematoma [Unknown]
  - Hepatic steatosis [Unknown]
  - Skin discolouration [Unknown]
  - Visual field defect [Unknown]
  - Graft versus host disease in skin [Unknown]
  - Glomerular filtration rate decreased [Recovering/Resolving]
  - Hypertension [Unknown]
